FAERS Safety Report 5877965-4 (Version None)
Quarter: 2008Q3

REPORT INFORMATION
  Report Type: 
  Country: None (occurrence: None)
  Receive Date: 20080911
  Receipt Date: 20080908
  Transmission Date: 20090109
  Serious: Yes (Life-Threatening)
  Sender: FDA-Public Use
  Company Number: CL-ASTRAZENECA-2008UW18635

PATIENT
  Age: 29 Year
  Sex: Female
  Weight: 80 kg

DRUGS (3)
  1. SEROQUEL [Suspect]
     Indication: BIPOLAR DISORDER
     Route: 048
     Dates: start: 20080808
  2. EFFEXOR XR [Suspect]
     Route: 048
     Dates: start: 20080808
  3. TRAMADOL HCL [Suspect]
     Dates: start: 20080808

REACTIONS (3)
  - DRUG TOXICITY [None]
  - INTENTIONAL OVERDOSE [None]
  - RESPIRATORY DEPRESSION [None]
